FAERS Safety Report 5216385-2 (Version None)
Quarter: 2007Q1

REPORT INFORMATION
  Report Type: 
  Country: None (occurrence: None)
  Receive Date: 20061124
  Receipt Date: 20060810
  Transmission Date: 20070707
  Serious: Yes (Other)
  Sender: FDA-Public Use
  Company Number: WAES 0608USA02576

PATIENT
  Sex: Male

DRUGS (1)
  1. VYTORIN [Suspect]
     Dosage: 10-20 MG/DAILY/PO
     Route: 048
     Dates: end: 20060803

REACTIONS (1)
  - RHABDOMYOLYSIS [None]
